FAERS Safety Report 6375130-8 (Version None)
Quarter: 2009Q3

REPORT INFORMATION
  Report Type: 
  Country: None (occurrence: None)
  Receive Date: 20090922
  Receipt Date: 20090922
  Transmission Date: 20100115
  Serious: No
  Sender: FDA-Public Use
  Company Number: None

PATIENT
  Age: 59 Year
  Sex: Male
  Weight: 95.3 kg

DRUGS (1)
  1. SERTRALINE HCL [Suspect]
     Dosage: 50 MG UD PO
     Route: 048
     Dates: start: 20090728, end: 20090813

REACTIONS (5)
  - AGITATION [None]
  - DEPRESSION [None]
  - HYPOMANIA [None]
  - INSOMNIA [None]
  - IRRITABILITY [None]
